FAERS Safety Report 7658235-0 (Version None)
Quarter: 2011Q3

REPORT INFORMATION
  Report Type: 
  Country: None (occurrence: None)
  Receive Date: 20110804
  Receipt Date: 20110804
  Transmission Date: 20111222
  Serious: No
  Sender: FDA-Public Use
  Company Number: None

PATIENT
  Age: 55 Year
  Sex: Female
  Weight: 68.0396 kg

DRUGS (2)
  1. CYMBALTA [Suspect]
     Indication: PAIN
     Dosage: CYMBALTA QD 60MG
     Dates: start: 20040101, end: 20080101
  2. CYMBALTA [Suspect]
     Indication: DEPRESSION
     Dosage: CYMBALTA QD 60MG
     Dates: start: 20040101, end: 20080101

REACTIONS (2)
  - DRUG INEFFECTIVE [None]
  - SUICIDAL IDEATION [None]
